FAERS Safety Report 24813123 (Version 1)
Quarter: 2025Q1

REPORT INFORMATION
  Report Type: Spontaneous
  Country: US (occurrence: US)
  Receive Date: 20250107
  Receipt Date: 20250107
  Transmission Date: 20250409
  Serious: Yes (Other)
  Sender: VELOXIS PHARMACEUTICALS
  Company Number: US-MLMSERVICE-20241226-PI326161-00306-1

PATIENT
  Age: 58 Year
  Sex: Female

DRUGS (1)
  1. TACROLIMUS [Suspect]
     Active Substance: TACROLIMUS
     Indication: Immunosuppression

REACTIONS (5)
  - Gastric mucosa erythema [Unknown]
  - Granuloma [Unknown]
  - Vocal cord haemorrhage [Unknown]
  - Kaposi^s sarcoma [Unknown]
  - Metastases to bone [Unknown]
